FAERS Safety Report 12547044 (Version 2)
Quarter: 2016Q3

REPORT INFORMATION
  Report Type: Spontaneous
  Country: FR (occurrence: FR)
  Receive Date: 20160711
  Receipt Date: 20160908
  Transmission Date: 20161109
  Serious: Yes (Other)
  Sender: FDA-Public Use
  Company Number: FR-BRISTOL-MYERS SQUIBB COMPANY-BMS-2016-054699

PATIENT
  Sex: Female
  Weight: 67 kg

DRUGS (1)
  1. NIVOLUMAB BMS [Suspect]
     Active Substance: NIVOLUMAB
     Indication: LUNG NEOPLASM MALIGNANT
     Dosage: 1 MG/KG, UNK
     Route: 065
     Dates: start: 20150917

REACTIONS (3)
  - Pemphigoid [Recovering/Resolving]
  - Arthralgia [Unknown]
  - Product use issue [Unknown]
